FAERS Safety Report 10991047 (Version 4)
Quarter: 2015Q2

REPORT INFORMATION
  Report Type: Spontaneous
  Country: JP (occurrence: JP)
  Receive Date: 20150406
  Receipt Date: 20150630
  Transmission Date: 20150821
  Serious: Yes (Hospitalization, Disabling)
  Sender: FDA-Public Use
  Company Number: JP-GLAXOSMITHKLINE-JP2015JPN031136

PATIENT
  Sex: Female

DRUGS (14)
  1. LAMICTAL [Suspect]
     Active Substance: LAMOTRIGINE
     Dosage: 100 MG, BID
     Route: 048
     Dates: start: 20150119
  2. ABILIFY [Concomitant]
     Active Substance: ARIPIPRAZOLE
  3. LAMICTAL [Suspect]
     Active Substance: LAMOTRIGINE
     Dosage: 75 MG, BID
     Route: 048
     Dates: start: 20141227, end: 20150118
  4. CYMBALTA [Concomitant]
     Active Substance: DULOXETINE HYDROCHLORIDE
     Dosage: 20 MG, 1D
     Dates: start: 20140130
  5. LAMICTAL [Suspect]
     Active Substance: LAMOTRIGINE
     Indication: MANIA
     Dosage: 25 MG, QD
     Route: 048
     Dates: start: 20141020, end: 20141110
  6. DEPAKENE [Concomitant]
     Active Substance: VALPROIC ACID
     Dosage: UNK
  7. LAMICTAL [Suspect]
     Active Substance: LAMOTRIGINE
     Dosage: 25 MG, BID
     Route: 048
     Dates: start: 20141111, end: 20141128
  8. LAMICTAL [Suspect]
     Active Substance: LAMOTRIGINE
     Dosage: 50 MG, BID
     Route: 048
     Dates: start: 20141129, end: 20141226
  9. CONSTAN [Concomitant]
     Active Substance: ALPRAZOLAM
     Dosage: UNK
  10. WYPAX [Concomitant]
     Active Substance: LORAZEPAM
     Dosage: UNK
  11. LANDSEN [Concomitant]
     Active Substance: CLONAZEPAM
     Dosage: UNK
  12. ZYPREXA [Concomitant]
     Active Substance: OLANZAPINE
     Dosage: UNK
  13. CYMBALTA [Concomitant]
     Active Substance: DULOXETINE HYDROCHLORIDE
     Dosage: 60 MG, 1D
     Dates: start: 20140421
  14. LAMICTAL [Suspect]
     Active Substance: LAMOTRIGINE
     Indication: BIPOLAR DISORDER
     Dosage: 25 MG, QOD
     Route: 048
     Dates: start: 20141006, end: 20141019

REACTIONS (4)
  - Amnesia [Recovered/Resolved]
  - Panic attack [Recovering/Resolving]
  - Anxiety [Recovering/Resolving]
  - Irritability [Recovering/Resolving]
